FAERS Safety Report 5905037-9 (Version None)
Quarter: 2008Q3

REPORT INFORMATION
  Report Type: 
  Country: None (occurrence: None)
  Receive Date: 20080909
  Receipt Date: 20080708
  Transmission Date: 20090109
  Serious: Yes (Death)
  Sender: FDA-Public Use
  Company Number: 163-20785-08041400

PATIENT
  Age: 58 Year
  Sex: Male

DRUGS (1)
  1. THALOMID [Suspect]
     Indication: MULTIPLE MYELOMA
     Dosage: 50MG HS X7D, THEN 100 MG QHS X7D, THEN 200MG HS THEREAFTER, ORAL
     Route: 048
     Dates: start: 20080311, end: 20080314

REACTIONS (1)
  - MULTIPLE MYELOMA [None]
